FAERS Safety Report 18411308 (Version 4)
Quarter: 2020Q4

REPORT INFORMATION
  Report Type: Report from Study
  Country: US (occurrence: US)
  Receive Date: 20201021
  Receipt Date: 20201120
  Transmission Date: 20210114
  Serious: Yes (Hospitalization)
  Sender: FDA-Public Use
  Company Number: US-SEATTLE GENETICS-2020SGN04681

PATIENT
  Sex: Female

DRUGS (2)
  1. TUCATINIB [Suspect]
     Active Substance: TUCATINIB
     Indication: BREAST CANCER FEMALE
  2. CAPECITABINE. [Suspect]
     Active Substance: CAPECITABINE
     Indication: BREAST CANCER FEMALE

REACTIONS (9)
  - Blood bilirubin abnormal [Unknown]
  - Metastases to liver [Unknown]
  - Hospice care [Unknown]
  - Adverse drug reaction [Unknown]
  - Diarrhoea [Unknown]
  - Hepatomegaly [Unknown]
  - Haematochezia [Unknown]
  - Haematemesis [Unknown]
  - Illness [Unknown]
